FAERS Safety Report 18212469 (Version 1)
Quarter: 2020Q3

REPORT INFORMATION
  Report Type: Spontaneous
  Country: US (occurrence: US)
  Receive Date: 20200831
  Receipt Date: 20200831
  Transmission Date: 20201103
  Serious: No
  Sender: FDA-Public Use
  Company Number: US-MYLANLABS-2020M1073632

PATIENT
  Sex: Female
  Weight: 54 kg

DRUGS (1)
  1. ESTRADIOL VAGINAL CREAM USP [Suspect]
     Active Substance: ESTRADIOL
     Indication: ATROPHIC VULVOVAGINITIS
     Dosage: 3 TIMES WEEKLY
     Route: 067
     Dates: end: 20200820

REACTIONS (5)
  - Vulvovaginal swelling [Recovered/Resolved]
  - Drug ineffective [Unknown]
  - Vulvovaginal pruritus [Recovered/Resolved]
  - Vulvovaginal burning sensation [Recovered/Resolved]
  - Vaginal discharge [Recovered/Resolved]
